FAERS Safety Report 21411596 (Version 2)
Quarter: 2022Q4

REPORT INFORMATION
  Report Type: Spontaneous
  Country: DE (occurrence: DE)
  Receive Date: 20221005
  Receipt Date: 20221125
  Transmission Date: 20230112
  Serious: Yes (Life-Threatening, Hospitalization, Other)
  Sender: FDA-Public Use
  Company Number: DE-DCGMA-22199380

PATIENT
  Age: 4 Year
  Sex: Female
  Weight: 13 kg

DRUGS (12)
  1. CLARITHROMYCIN [Suspect]
     Active Substance: CLARITHROMYCIN
     Indication: Sepsis
     Dosage: 90-90-0-0, CLARITHROMYCIN 25MG/ML, THERAPY END DATE : NASK
     Route: 042
     Dates: start: 20220428
  2. LACOSAMIDE [Suspect]
     Active Substance: LACOSAMIDE
     Indication: Epilepsy
     Dosage: LACOSAMID 10MG/ML, THERAPY START : NASK, FREQUENCY: 1-0-1 DAILY, UNIT DOSE: 3.5 ML
     Route: 048
     Dates: end: 20220501
  3. BRIVARACETAM [Suspect]
     Active Substance: BRIVARACETAM
     Indication: Epilepsy
     Dosage: 1-0-1 DAILY
     Route: 048
  4. VALPROIC ACID [Suspect]
     Active Substance: VALPROIC ACID
     Indication: Epilepsy
     Dosage: 1-0-(0)1 DAILY
     Route: 048
  5. OMEPRAZOLE [Concomitant]
     Active Substance: OMEPRAZOLE
     Indication: Gastrooesophageal reflux disease
     Dosage: 10-0-0 MG
     Route: 048
  6. VITAMIN D [Concomitant]
     Active Substance: VITAMIN D NOS
     Indication: Vitamin supplementation
     Dosage: 0-0-500 IU DAILY
     Route: 048
  7. Laxbene Junior [Concomitant]
     Indication: Constipation
     Dosage: SACHET
     Route: 048
  8. MIDAZOLAM HYDROCHLORIDE [Concomitant]
     Active Substance: MIDAZOLAM HYDROCHLORIDE
     Indication: Status epilepticus
     Route: 048
  9. PIPERACILLIN AND TAZOBACTAM [Concomitant]
     Active Substance: PIPERACILLIN SODIUM\TAZOBACTAM SODIUM
     Indication: Atypical pneumonia
     Dosage: (8+1), 870-870-870 MG
     Route: 042
     Dates: start: 20220429, end: 20220509
  10. TOBRAMYCIN [Concomitant]
     Active Substance: TOBRAMYCIN
     Indication: Atypical pneumonia
     Dosage: 0-60-0 MG
     Route: 042
     Dates: start: 20220429, end: 20220509
  11. LASIX [Concomitant]
     Active Substance: FUROSEMIDE
     Indication: Oedema
     Dosage: 10 MILLIGRAM DAILY; 5-5-0 MG
     Route: 042
     Dates: start: 20220430
  12. AMPICILLIN AND SULBACTAM [Concomitant]
     Active Substance: AMPICILLIN SODIUM\SULBACTAM SODIUM
     Indication: Atypical pneumonia
     Route: 042
     Dates: start: 20220427, end: 20220428

REACTIONS (5)
  - Bradycardia [Recovered/Resolved]
  - Atrioventricular block first degree [Recovered/Resolved]
  - Body temperature decreased [Recovered/Resolved]
  - Oxygen consumption increased [Recovered/Resolved]
  - Arrhythmia [Recovered/Resolved]

NARRATIVE: CASE EVENT DATE: 20220427
